FAERS Safety Report 25593508 (Version 1)
Quarter: 2025Q3

REPORT INFORMATION
  Report Type: Spontaneous
  Country: AU (occurrence: AU)
  Receive Date: 20250722
  Receipt Date: 20250722
  Transmission Date: 20251020
  Serious: Yes (Other)
  Sender: SANDOZ
  Company Number: AU-AMGEN-AUSSP2025117072

PATIENT
  Sex: Female

DRUGS (2)
  1. ADALIMUMAB [Suspect]
     Active Substance: ADALIMUMAB
     Indication: Crohn^s disease
     Route: 065
  2. METHOTREXATE [Concomitant]
     Active Substance: METHOTREXATE
     Indication: Product used for unknown indication
     Route: 065

REACTIONS (9)
  - Diverticulum intestinal [Unknown]
  - Hiatus hernia [Unknown]
  - Large intestine polyp [Unknown]
  - Neutrophilia [Unknown]
  - Quality of life decreased [Unknown]
  - Reflux gastritis [Unknown]
  - Secondary amyloidosis [Unknown]
  - Fatigue [Not Recovered/Not Resolved]
  - Intestinal perforation [Unknown]
